FAERS Safety Report 4511756-1 (Version None)
Quarter: 2004Q4

REPORT INFORMATION
  Report Type: 
  Country: None (occurrence: None)
  Receive Date: 20041129
  Receipt Date: 20041119
  Transmission Date: 20050328
  Serious: Yes (Hospitalization)
  Sender: FDA-Public Use
  Company Number: US-ABBOTT-04P-163-0281231-00

PATIENT
  Sex: Female
  Weight: 57.658 kg

DRUGS (6)
  1. HUMIRA [Suspect]
     Indication: CROHN'S DISEASE
     Route: 058
     Dates: start: 20040801, end: 20041001
  2. HUMIRA [Suspect]
     Indication: RHEUMATOID ARTHRITIS
     Dates: start: 20041001, end: 20041106
  3. AZATHIOPRINE [Concomitant]
     Indication: RHEUMATOID ARTHRITIS
  4. BACTRIM [Concomitant]
     Indication: ANTIBACTERIAL PROPHYLAXIS
  5. METRONIDAZOLE [Concomitant]
     Indication: DRUG USE FOR UNKNOWN INDICATION
  6. PANTOPRAZOLE [Concomitant]
     Indication: DRUG USE FOR UNKNOWN INDICATION

REACTIONS (5)
  - ABDOMINAL ADHESIONS [None]
  - ANAEMIA [None]
  - INTESTINAL OBSTRUCTION [None]
  - OSTEOMYELITIS [None]
  - PERITONEAL HERNIA [None]
